FAERS Safety Report 7631809-9 (Version None)
Quarter: 2011Q3

REPORT INFORMATION
  Report Type: 
  Country: None (occurrence: None)
  Receive Date: 20110725
  Receipt Date: 20110401
  Transmission Date: 20111222
  Serious: No
  Sender: FDA-Public Use
  Company Number: US-BRISTOL-MYERS SQUIBB COMPANY-15653710

PATIENT
  Age: 67 Year
  Sex: Female

DRUGS (16)
  1. COUMADIN [Suspect]
     Indication: PULMONARY EMBOLISM
     Route: 048
  2. MORPHINE [Concomitant]
  3. DIAZEPAM [Concomitant]
  4. NEURONTIN [Concomitant]
  5. REVATIO [Concomitant]
  6. LASIX [Concomitant]
  7. CELEBREX [Concomitant]
  8. INSULIN [Concomitant]
  9. TRICOR [Concomitant]
  10. HYDROCODONE BITARTRATE [Concomitant]
  11. LEXAPRO [Concomitant]
  12. ALLEGRA [Concomitant]
  13. SPIRONOLACTONE [Concomitant]
  14. PREDNISONE [Concomitant]
  15. GLIPIZIDE [Concomitant]
  16. LEVOTHYROXINE SODIUM [Concomitant]

REACTIONS (2)
  - EPISTAXIS [None]
  - INTERNATIONAL NORMALISED RATIO FLUCTUATION [None]
